FAERS Safety Report 4636359-X (Version None)
Quarter: 2005Q2

REPORT INFORMATION
  Report Type: 
  Country: None (occurrence: None)
  Receive Date: 20050415
  Receipt Date: 20050126
  Transmission Date: 20051028
  Serious: Yes (Other)
  Sender: FDA-Public Use
  Company Number: US-BRISTOL-MYERS SQUIBB COMPANY-12839676

PATIENT
  Age: 71 Year
  Sex: Female
  Weight: 55 kg

DRUGS (4)
  1. PARAPLATIN [Suspect]
     Indication: OVARIAN CANCER
     Dosage: FIRST DOSE OF CYCLE ON 04-JAN-2005, SECOND DOSE OF THIS CYCLE ON 25-JAN-2005.
     Route: 042
     Dates: start: 20050125, end: 20050125
  2. BENADRYL [Concomitant]
     Indication: PREMEDICATION
     Route: 042
  3. PEPCID [Concomitant]
     Indication: PREMEDICATION
     Route: 042
  4. DECADRON [Concomitant]
     Indication: PREMEDICATION
     Route: 042

REACTIONS (1)
  - HYPERSENSITIVITY [None]
